FAERS Safety Report 15349784 (Version 2)
Quarter: 2018Q3

REPORT INFORMATION
  Report Type: Report from Study
  Country: US (occurrence: US)
  Receive Date: 20180904
  Receipt Date: 20180911
  Transmission Date: 20181010
  Serious: Yes (Other)
  Sender: FDA-Public Use
  Company Number: US-JAZZ-2018-US-012554

PATIENT
  Age: 38 Year
  Sex: Male

DRUGS (12)
  1. TRAMADOL HCL [Concomitant]
     Active Substance: TRAMADOL HYDROCHLORIDE
  2. PILOCARPINE HCL [Concomitant]
     Active Substance: PILOCARPINE HYDROCHLORIDE
  3. CAFFEINE. [Concomitant]
     Active Substance: CAFFEINE
  4. VITAMIN D3 [Concomitant]
     Active Substance: CHOLECALCIFEROL
  5. XYREM [Suspect]
     Active Substance: SODIUM OXYBATE
     Indication: CATAPLEXY
  6. METFORMIN HCL [Concomitant]
     Active Substance: METFORMIN HYDROCHLORIDE
  7. ADDERALL [Concomitant]
     Active Substance: AMPHETAMINE ASPARTATE\AMPHETAMINE SULFATE\DEXTROAMPHETAMINE SACCHARATE\DEXTROAMPHETAMINE SULFATE
  8. XYREM [Suspect]
     Active Substance: SODIUM OXYBATE
     Indication: NARCOLEPSY
     Dosage: 1.5 G, BID
     Route: 048
     Dates: start: 201808
  9. DEPAKOTE [Concomitant]
     Active Substance: DIVALPROEX SODIUM
  10. DICYCLOMINE [Concomitant]
     Active Substance: DICYCLOMINE HYDROCHLORIDE
  11. DOXEPIN [Concomitant]
     Active Substance: DOXEPIN
  12. ACYCLOVIR. [Concomitant]
     Active Substance: ACYCLOVIR

REACTIONS (5)
  - Feeling abnormal [Unknown]
  - Gastrointestinal disorder [Unknown]
  - Feeling drunk [Not Recovered/Not Resolved]
  - Negative thoughts [Not Recovered/Not Resolved]
  - Cholecystectomy [Unknown]

NARRATIVE: CASE EVENT DATE: 201808
